FAERS Safety Report 5389543-4 (Version None)
Quarter: 2007Q3

REPORT INFORMATION
  Report Type: 
  Country: None (occurrence: None)
  Receive Date: 20070717
  Receipt Date: 20070710
  Transmission Date: 20080115
  Serious: Yes (Hospitalization, Other)
  Sender: FDA-Public Use
  Company Number: IE-PFIZER INC-2007036612

PATIENT
  Age: 46 Year
  Sex: Female
  Weight: 59.42 kg

DRUGS (10)
  1. LIPITOR [Suspect]
     Indication: BLOOD CHOLESTEROL INCREASED
     Route: 048
  2. PREDNISOLONE [Concomitant]
     Dosage: DAILY DOSE:5MG
  3. KLACID [Concomitant]
     Dates: start: 20051224
  4. AMOXICILLIN + CLAVULANATE POTASSIUM [Concomitant]
     Dosage: TEXT:500/125MG-FREQ:BID
     Dates: start: 20060324
  5. CLARITHROMYCIN [Concomitant]
     Dates: start: 20050520
  6. DIFENE [Concomitant]
     Dates: start: 20070104
  7. ACETAMINOPHEN [Concomitant]
     Dosage: DAILY DOSE:500MG
  8. METRONIDAZOLE [Concomitant]
     Dates: start: 20070122
  9. PINAMOX [Concomitant]
  10. AMOXICILLIN [Concomitant]
     Dates: start: 20070213

REACTIONS (4)
  - HYPERCALCAEMIA [None]
  - OSTEOPOROSIS [None]
  - PARATHYROID TUMOUR [None]
  - THYMECTOMY [None]
